FAERS Safety Report 8119908-9 (Version None)
Quarter: 2012Q1

REPORT INFORMATION
  Report Type: 
  Country: None (occurrence: None)
  Receive Date: 20120207
  Receipt Date: 20120202
  Transmission Date: 20120608
  Serious: Yes (Hospitalization)
  Sender: FDA-Public Use
  Company Number: DE-ELI_LILLY_AND_COMPANY-DE201201007303

PATIENT
  Sex: Male

DRUGS (4)
  1. LEVEMIR [Concomitant]
     Dosage: 40 DF, UNKNOWN
  2. METFORMIN HCL [Concomitant]
     Dosage: 1000 MG, BID
  3. APIDRA [Concomitant]
     Dosage: UNK
     Dates: start: 20120101
  4. BYDUREON [Suspect]
     Indication: TYPE 2 DIABETES MELLITUS
     Dosage: 2 MG, UNK
     Route: 058

REACTIONS (3)
  - HOSPITALISATION [None]
  - OFF LABEL USE [None]
  - INJECTION SITE ABSCESS [None]
